FAERS Safety Report 13499382 (Version 1)
Quarter: 2017Q2

REPORT INFORMATION
  Report Type: Spontaneous
  Country: DE (occurrence: DE)
  Receive Date: 20170501
  Receipt Date: 20170501
  Transmission Date: 20170830
  Serious: Yes (Hospitalization, Other)
  Sender: FDA-Public Use
  Company Number: DE-JNJFOC-20170424188

PATIENT
  Age: 59 Year
  Sex: Male

DRUGS (4)
  1. VINBLASTINE [Suspect]
     Active Substance: VINBLASTINE
     Indication: BLADDER TRANSITIONAL CELL CARCINOMA
     Route: 065
  2. METHOTREXATE. [Suspect]
     Active Substance: METHOTREXATE
     Indication: BLADDER TRANSITIONAL CELL CARCINOMA
     Route: 065
  3. DOXORUBICIN HYDROCHLORIDE. [Suspect]
     Active Substance: DOXORUBICIN HYDROCHLORIDE
     Indication: BLADDER TRANSITIONAL CELL CARCINOMA
     Route: 065
  4. CISPLATIN. [Suspect]
     Active Substance: CISPLATIN
     Indication: BLADDER TRANSITIONAL CELL CARCINOMA
     Route: 065

REACTIONS (4)
  - Left ventricular dysfunction [Unknown]
  - Off label use [Unknown]
  - Product use in unapproved indication [Unknown]
  - Coronary artery disease [Unknown]
